FAERS Safety Report 19207462 (Version 10)
Quarter: 2023Q4

REPORT INFORMATION
  Report Type: Spontaneous
  Country: US (occurrence: US)
  Receive Date: 20210503
  Receipt Date: 20231222
  Transmission Date: 20240109
  Serious: No
  Sender: FDA-Public Use
  Company Number: US-PFIZER INC-2021204227

PATIENT
  Age: 50 Year
  Sex: Female

DRUGS (4)
  1. IBRANCE [Suspect]
     Active Substance: PALBOCICLIB
     Indication: Breast cancer female
     Dosage: FOR 21 DAYS ON, 7 DAYS OFF
     Route: 048
     Dates: start: 20210204
  2. IBRANCE [Suspect]
     Active Substance: PALBOCICLIB
     Dosage: 1 TAB QD FOR 21 DAYS AND 7 DAYS OFF EVERY 28 DAYS
     Route: 048
     Dates: start: 20210205
  3. IBRANCE [Suspect]
     Active Substance: PALBOCICLIB
     Dosage: 1 TABLET DAILY FOR 21 DAYS ON AND 7 DAYS OFF
     Route: 048
     Dates: start: 20210521
  4. IBRANCE [Suspect]
     Active Substance: PALBOCICLIB
     Dosage: 1 TABLET ONCE A DAY FOR 21 DAYS ON AND 7 DAYS OFF
     Route: 048
     Dates: start: 20210521

REACTIONS (25)
  - Constipation [Unknown]
  - Dizziness [Not Recovered/Not Resolved]
  - Weight decreased [Unknown]
  - Epistaxis [Not Recovered/Not Resolved]
  - Rash [Not Recovered/Not Resolved]
  - Stomatitis [Not Recovered/Not Resolved]
  - Gingivitis [Not Recovered/Not Resolved]
  - Gingival pain [Not Recovered/Not Resolved]
  - Oral herpes [Not Recovered/Not Resolved]
  - Alopecia [Not Recovered/Not Resolved]
  - Fatigue [Not Recovered/Not Resolved]
  - White blood cell count decreased [Unknown]
  - Depressed mood [Unknown]
  - Insomnia [Not Recovered/Not Resolved]
  - Nervousness [Not Recovered/Not Resolved]
  - Anxiety [Not Recovered/Not Resolved]
  - Pollakiuria [Not Recovered/Not Resolved]
  - Osteoporosis [Unknown]
  - Hypoaesthesia [Not Recovered/Not Resolved]
  - Skin discolouration [Not Recovered/Not Resolved]
  - Visual impairment [Not Recovered/Not Resolved]
  - Hair texture abnormal [Not Recovered/Not Resolved]
  - Middle insomnia [Not Recovered/Not Resolved]
  - Terminal insomnia [Not Recovered/Not Resolved]
  - Affective disorder [Unknown]

NARRATIVE: CASE EVENT DATE: 20210101
